FAERS Safety Report 5684066-7 (Version None)
Quarter: 2008Q1

REPORT INFORMATION
  Report Type: 
  Country: None (occurrence: None)
  Receive Date: 20080328
  Receipt Date: 20080321
  Transmission Date: 20080703
  Serious: Yes (Other)
  Sender: FDA-Public Use
  Company Number: US-AVENTIS-200811850US

PATIENT
  Sex: Female
  Weight: 62.14 kg

DRUGS (6)
  1. LANTUS [Suspect]
     Indication: TYPE 2 DIABETES MELLITUS
     Dosage: DOSE: UNK
     Route: 058
  2. DRUG USED IN DIABETES [Suspect]
     Indication: TYPE 2 DIABETES MELLITUS
     Route: 058
     Dates: start: 20071201
  3. DRUG USED IN DIABETES [Suspect]
     Route: 058
     Dates: start: 20071201, end: 20071201
  4. NOVOLOG [Suspect]
     Dosage: DOSE: UNK
  5. BYETTA [Concomitant]
     Dosage: DOSE: UNK
  6. GLUCOPHAGE [Concomitant]
     Dosage: DOSE: UNK

REACTIONS (2)
  - HUNGER [None]
  - WEIGHT INCREASED [None]
